FAERS Safety Report 20679630 (Version 1)
Quarter: 2022Q2

REPORT INFORMATION
  Report Type: Spontaneous
  Country: US (occurrence: US)
  Receive Date: 20220406
  Receipt Date: 20220406
  Transmission Date: 20220721
  Serious: No
  Sender: FDA-Public Use
  Company Number: US-PFIZER INC-202101741703

PATIENT
  Age: 10 Year
  Sex: Male
  Weight: 37.65 kg

DRUGS (3)
  1. GENOTROPIN [Suspect]
     Active Substance: SOMATROPIN
     Dosage: UNK
     Dates: start: 2021
  2. GENOTROPIN [Concomitant]
     Active Substance: SOMATROPIN
     Indication: Growth hormone deficiency
     Dosage: 1.0 MG, 1X/DAY(1.0MG EVERY NIGHT BY INJECTION )
  3. AZELASTINE HYDROCHLORIDE [Concomitant]
     Active Substance: AZELASTINE HYDROCHLORIDE
     Indication: Hypersensitivity
     Dosage: 137 UG, 2X/DAY(0.1%, 137MCG PER SPRAY, 1 SPRAY PER NOSTRIL TWICE A DAY )
     Dates: start: 202112

REACTIONS (4)
  - Poor quality device used [Unknown]
  - Device issue [Unknown]
  - Illness [Unknown]
  - Drug hypersensitivity [Unknown]

NARRATIVE: CASE EVENT DATE: 20210101
